FAERS Safety Report 15508118 (Version 2)
Quarter: 2018Q4

REPORT INFORMATION
  Report Type: Report from Study
  Country: GB (occurrence: GB)
  Receive Date: 20181016
  Receipt Date: 20181112
  Transmission Date: 20190205
  Serious: Yes (Hospitalization, Other)
  Sender: FDA-Public Use
  Company Number: GB-SHIRE-GB201839130

PATIENT

DRUGS (32)
  1. ZANTAC [Concomitant]
     Active Substance: RANITIDINE HYDROCHLORIDE
     Indication: FLATULENCE
  2. NYSTATIN. [Concomitant]
     Active Substance: NYSTATIN
     Indication: STOMATITIS
  3. ATORVASTATIN [Concomitant]
     Active Substance: ATORVASTATIN
     Indication: HYPERLIPIDAEMIA
  4. PARACETAMOL [Concomitant]
     Active Substance: ACETAMINOPHEN
     Indication: PYREXIA
  5. ACICLOVIR [Concomitant]
     Active Substance: ACYCLOVIR
     Indication: ANTIVIRAL PROPHYLAXIS
  6. ALLOPURINOL. [Concomitant]
     Active Substance: ALLOPURINOL
     Indication: BLOOD URIC ACID INCREASED
  7. DOCUSATE SODIUM. [Concomitant]
     Active Substance: DOCUSATE SODIUM
     Indication: CONSTIPATION
  8. PEGASPARGASE [Suspect]
     Active Substance: PEGASPARGASE
     Indication: ACUTE LYMPHOCYTIC LEUKAEMIA
     Dosage: 2260 IU, UNK (DAY 18)
     Route: 042
     Dates: start: 20180504, end: 20180504
  9. MAXOLON [Concomitant]
     Active Substance: METOCLOPRAMIDE HYDROCHLORIDE
     Indication: NAUSEA
  10. SENOKOT [Concomitant]
     Active Substance: SENNOSIDES
     Indication: CONSTIPATION
  11. DIFFLAM [Concomitant]
     Active Substance: BENZYDAMINE HYDROCHLORIDE
     Indication: MUCOSAL INFLAMMATION
  12. DALTEPARIN [Concomitant]
     Active Substance: DALTEPARIN
     Indication: ANTICOAGULANT THERAPY
  13. NELARABINE [Suspect]
     Active Substance: NELARABINE
     Indication: ACUTE LYMPHOCYTIC LEUKAEMIA
     Route: 065
  14. PALIFERMIN [Suspect]
     Active Substance: PALIFERMIN
     Indication: ACUTE LYMPHOCYTIC LEUKAEMIA
     Route: 065
  15. FASTURTEC [Concomitant]
     Active Substance: RASBURICASE
     Indication: HYPERURICAEMIA
  16. AMBISOME [Concomitant]
     Active Substance: AMPHOTERICIN B
     Indication: PROPHYLAXIS
  17. ZOPICLONE [Concomitant]
     Active Substance: ZOPICLONE
     Indication: INSOMNIA
  18. CIPROFLOXACIN. [Concomitant]
     Active Substance: CIPROFLOXACIN
     Indication: BACTERIAL INFECTION
  19. VINCRISTINE [Concomitant]
     Active Substance: VINCRISTINE
     Indication: ACUTE LYMPHOCYTIC LEUKAEMIA
  20. RITUXIMAB. [Suspect]
     Active Substance: RITUXIMAB
     Indication: ACUTE LYMPHOCYTIC LEUKAEMIA
     Route: 065
  21. PHYTOMENADIONE [Concomitant]
     Active Substance: PHYTONADIONE
     Indication: COAGULOPATHY
  22. MEROPENEM. [Concomitant]
     Active Substance: MEROPENEM
     Indication: SEPSIS
  23. LANSOPRAZOLE. [Concomitant]
     Active Substance: LANSOPRAZOLE
     Indication: GASTROINTESTINAL DISORDER
  24. ZARZIO [Concomitant]
     Active Substance: FILGRASTIM
     Indication: NEUTROPHIL COUNT DECREASED
  25. MEROPENEM. [Concomitant]
     Active Substance: MEROPENEM
     Indication: NEUTROPENIA
  26. ONDANSETRON [Concomitant]
     Active Substance: ONDANSETRON
     Indication: NAUSEA
  27. DEXAMETHASONE. [Concomitant]
     Active Substance: DEXAMETHASONE
     Indication: ACUTE LYMPHOCYTIC LEUKAEMIA
  28. PARACETAMOL [Concomitant]
     Active Substance: ACETAMINOPHEN
     Indication: ANALGESIC THERAPY
  29. COTRIMOXAZOLE [Concomitant]
     Active Substance: SULFAMETHOXAZOLE\TRIMETHOPRIM
     Indication: ANTIBIOTIC PROPHYLAXIS
  30. ANUSOL NOS [Concomitant]
     Active Substance: BALSAM PERU\BENZYL BENZOATE\BISMUTH HYDROXIDE\BISMUTH SUBGALLATE\HYDROCORTISONE ACETATE\ZINC OXIDE
     Indication: HAEMORRHOIDS
  31. METHOTREXATE. [Concomitant]
     Active Substance: METHOTREXATE
     Indication: ACUTE LYMPHOCYTIC LEUKAEMIA
  32. DAUNORUBICIN [Concomitant]
     Active Substance: DAUNORUBICIN
     Indication: ACUTE LYMPHOCYTIC LEUKAEMIA

REACTIONS (1)
  - Thrombophlebitis superficial [Recovered/Resolved with Sequelae]

NARRATIVE: CASE EVENT DATE: 20180514
